FAERS Safety Report 8976783 (Version 1)
Quarter: 2012Q4

REPORT INFORMATION
  Report Type: 
  Country: US (occurrence: US)
  Receive Date: 20121219
  Receipt Date: 20121219
  Transmission Date: 20130627
  Serious: No
  Sender: FDA-Public Use
  Company Number: US-AMGEN-USASP2012059917

PATIENT
  Age: 63 Year
  Sex: Female

DRUGS (8)
  1. PROLIA [Suspect]
     Indication: OSTEOPOROSIS POSTMENOPAUSAL
     Dosage: UNK UNK, q6mo
     Dates: start: 20120917
  2. CALCIUM WITH VITAMIN D             /00944201/ [Concomitant]
     Dosage: UNK
  3. SYNTHROID [Concomitant]
     Dosage: 0.75 mug, qd
  4. CRESTOR [Concomitant]
     Dosage: UNK
     Dates: start: 20120910
  5. OMEGA 3                            /01334101/ [Concomitant]
     Dosage: UNK
  6. MULTIVITAMIN                       /00097801/ [Concomitant]
     Dosage: UNK
  7. COQ10                              /00517201/ [Concomitant]
     Dosage: UNK UNK, qhs
  8. GABAPENTIN [Concomitant]
     Dosage: UNK UNK, qhs

REACTIONS (5)
  - Nausea [Not Recovered/Not Resolved]
  - Flatulence [Recovered/Resolved]
  - Arthralgia [Not Recovered/Not Resolved]
  - Pruritus [Not Recovered/Not Resolved]
  - Bone pain [Not Recovered/Not Resolved]
